FAERS Safety Report 21371358 (Version 1)
Quarter: 2022Q3

REPORT INFORMATION
  Report Type: Spontaneous
  Country: IT (occurrence: IT)
  Receive Date: 20220923
  Receipt Date: 20220923
  Transmission Date: 20221026
  Serious: Yes (Other)
  Sender: FDA-Public Use
  Company Number: IT-NOVARTISPH-NVSC2022IT212163

PATIENT
  Age: 31 Year
  Sex: Male

DRUGS (4)
  1. ETOPOSIDE [Suspect]
     Active Substance: ETOPOSIDE
     Indication: Nephroblastoma
     Dosage: UNK, CYCLIC (EVERY 21 DAYS)
     Route: 065
  2. TOPOTECAN [Suspect]
     Active Substance: TOPOTECAN HYDROCHLORIDE
     Indication: Nephroblastoma
     Dosage: UNK, CYCLIC (EVERY 21 DAYS)
     Route: 065
  3. CYCLOPHOSPHAMIDE [Suspect]
     Active Substance: CYCLOPHOSPHAMIDE
     Indication: Nephroblastoma
     Dosage: UNK, CYCLIC (EVERY 21 DAYS)
     Route: 065
  4. CARBOPLATIN [Suspect]
     Active Substance: CARBOPLATIN
     Indication: Nephroblastoma
     Dosage: UNK, CYCLIC (EVERY 21 DAYS)
     Route: 065

REACTIONS (2)
  - Nephroblastoma [Unknown]
  - Product use in unapproved indication [Unknown]
